FAERS Safety Report 8485755-1 (Version None)
Quarter: 2012Q3

REPORT INFORMATION
  Report Type: 
  Country: None (occurrence: None)
  Receive Date: 20120703
  Receipt Date: 20120627
  Transmission Date: 20120928
  Serious: Yes (Other)
  Sender: FDA-Public Use
  Company Number: US-FRI-1000036702

PATIENT
  Age: 88 Year
  Sex: Female
  Weight: 39.9 kg

DRUGS (5)
  1. EXELON [Concomitant]
     Indication: DEMENTIA
  2. VITAMIN D [Concomitant]
  3. CALCIUM [Concomitant]
  4. CELEXA [Suspect]
     Indication: DEPRESSION
     Dosage: 10 MG
     Route: 048
     Dates: start: 20090701, end: 20110613
  5. CELEXA [Suspect]
     Dosage: 20 MG IN AM, 10 MG IN PM
     Route: 048

REACTIONS (10)
  - FALL [None]
  - DRY MOUTH [None]
  - PERIORBITAL HAEMATOMA [None]
  - DECREASED APPETITE [None]
  - ASTHENIA [None]
  - FACIAL BONES FRACTURE [None]
  - WEIGHT DECREASED [None]
  - CONTUSION [None]
  - SOMNOLENCE [None]
  - DYSPNOEA [None]
